FAERS Safety Report 20744515 (Version 1)
Quarter: 2022Q2

REPORT INFORMATION
  Report Type: Spontaneous
  Country: JP (occurrence: JP)
  Receive Date: 20220425
  Receipt Date: 20220425
  Transmission Date: 20220721
  Serious: Yes (Other)
  Sender: FDA-Public Use
  Company Number: JP-CHUGAI-2022014544

PATIENT
  Age: 7 Decade
  Sex: Male

DRUGS (2)
  1. HERCEPTIN [Suspect]
     Active Substance: TRASTUZUMAB
     Indication: Rectal cancer
     Dosage: 8 MILLIGRAM/KILOGRAM, SINGLE
     Route: 041
     Dates: start: 20220411, end: 20220411
  2. PERJETA [Suspect]
     Active Substance: PERTUZUMAB
     Indication: Rectal cancer
     Dosage: (FORM STRENGTH: 420 MG/14 ML)
     Route: 041
     Dates: start: 20220411

REACTIONS (1)
  - Proctalgia [Recovering/Resolving]

NARRATIVE: CASE EVENT DATE: 20220411
